FAERS Safety Report 14816428 (Version 1)
Quarter: 2018Q2

REPORT INFORMATION
  Report Type: Spontaneous
  Country: US (occurrence: US)
  Receive Date: 20180426
  Receipt Date: 20180426
  Transmission Date: 20180711
  Serious: No
  Sender: FDA-Public Use
  Company Number: US-TEVA-2018-US-867615

PATIENT
  Sex: Female

DRUGS (1)
  1. ZOVIA [Suspect]
     Active Substance: ETHINYL ESTRADIOL\ETHYNODIOL DIACETATE
     Indication: ENDOMETRIOSIS
     Dosage: 1DF : 1 MG OF ETHYNODIOL DIACETATE AND 50 MCG OF ETHINYL ESTRADIOL

REACTIONS (6)
  - Migraine [Unknown]
  - Dysmenorrhoea [Unknown]
  - Drug ineffective [Unknown]
  - Headache [Unknown]
  - Muscle spasms [Unknown]
  - Menorrhagia [Unknown]
